FAERS Safety Report 5378443-1 (Version None)
Quarter: 2007Q3

REPORT INFORMATION
  Report Type: 
  Country: None (occurrence: None)
  Receive Date: 20070705
  Receipt Date: 20070625
  Transmission Date: 20080115
  Serious: Yes (Other)
  Sender: FDA-Public Use
  Company Number: DE-JNJFOC-20070603553

PATIENT
  Sex: Female

DRUGS (2)
  1. REMICADE [Suspect]
     Route: 042
  2. REMICADE [Suspect]
     Indication: PSORIASIS
     Route: 042

REACTIONS (5)
  - BODY TEMPERATURE INCREASED [None]
  - CHILLS [None]
  - CONJUNCTIVITIS [None]
  - INFUSION RELATED REACTION [None]
  - MYALGIA [None]
